FAERS Safety Report 9206108 (Version 1)
Quarter: 2013Q2

REPORT INFORMATION
  Report Type: Spontaneous
  Country: US (occurrence: US)
  Receive Date: 20130403
  Receipt Date: 20130403
  Transmission Date: 20140414
  Serious: No
  Sender: FDA-Public Use
  Company Number: US-BAYER-2013-041970

PATIENT
  Age: 57 Year
  Sex: Female

DRUGS (3)
  1. CLIMARA [Suspect]
     Dosage: UNK
     Route: 062
     Dates: start: 2005, end: 201303
  2. CLIMARA [Suspect]
     Dosage: UNK
     Dates: start: 2005, end: 201303
  3. THYROID [Concomitant]

REACTIONS (2)
  - Urticaria [Recovered/Resolved]
  - Application site erythema [None]
